FAERS Safety Report 5495969-0 (Version None)
Quarter: 2007Q4

REPORT INFORMATION
  Report Type: 
  Country: None (occurrence: None)
  Receive Date: 20071025
  Receipt Date: 20070104
  Transmission Date: 20080405
  Serious: No
  Sender: FDA-Public Use
  Company Number: A0634125A

PATIENT
  Age: 64 Year
  Sex: Female

DRUGS (4)
  1. ADVAIR DISKUS 100/50 [Suspect]
     Indication: BRONCHITIS
     Dosage: 1PUFF TWICE PER DAY
     Route: 055
     Dates: start: 20061005
  2. SPIRIVA [Concomitant]
  3. METFORMIN [Concomitant]
  4. AVANDIA [Concomitant]

REACTIONS (8)
  - EMOTIONAL DISORDER [None]
  - EYE DISORDER [None]
  - LARYNGITIS [None]
  - LIP SWELLING [None]
  - NERVOUSNESS [None]
  - SWOLLEN TONGUE [None]
  - THROAT IRRITATION [None]
  - TREMOR [None]
